FAERS Safety Report 4312613-6 (Version None)
Quarter: 2004Q1

REPORT INFORMATION
  Report Type: 
  Country: None (occurrence: None)
  Receive Date: 20040305
  Receipt Date: 20040301
  Transmission Date: 20041129
  Serious: Yes (Death, Life-Threatening)
  Sender: FDA-Public Use
  Company Number: WAES 0403USA00105

PATIENT
  Age: 67 Year
  Sex: Male

DRUGS (5)
  1. FOSAMAX [Suspect]
     Indication: OSTEOPOROSIS
     Route: 048
     Dates: start: 20031031, end: 20031210
  2. ENDOXAN [Suspect]
     Route: 048
     Dates: start: 20031202, end: 20031204
  3. TAKEPRON [Suspect]
     Route: 048
     Dates: start: 20031031, end: 20031210
  4. FASTIC [Suspect]
     Route: 048
     Dates: start: 20031117, end: 20031210
  5. PREDNISOLONE [Suspect]
     Route: 048

REACTIONS (2)
  - INFECTION [None]
  - TOXIC EPIDERMAL NECROLYSIS [None]
